FAERS Safety Report 24769250 (Version 3)
Quarter: 2025Q2

REPORT INFORMATION
  Report Type: Report from Study
  Country: US (occurrence: US)
  Receive Date: 20241224
  Receipt Date: 20250527
  Transmission Date: 20250716
  Serious: Yes (Hospitalization, Other)
  Sender: CSL BEHRING
  Company Number: US-BEH-2024182343

PATIENT
  Age: 58 Year
  Sex: Female
  Weight: 57.143 kg

DRUGS (2)
  1. ZEMAIRA [Suspect]
     Active Substance: .ALPHA.1-PROTEINASE INHIBITOR HUMAN
     Indication: Alpha-1 antitrypsin deficiency
     Dosage: UNK, QOW
     Route: 042
  2. ZEMAIRA [Suspect]
     Active Substance: .ALPHA.1-PROTEINASE INHIBITOR HUMAN
     Dosage: UNK, QW
     Route: 042

REACTIONS (5)
  - Transplant rejection [Recovering/Resolving]
  - Pancreatitis [Unknown]
  - Gastrointestinal disorder [Unknown]
  - Therapy interrupted [Unknown]
  - Insurance issue [Unknown]
